FAERS Safety Report 9198343 (Version 1)
Quarter: 2013Q1

REPORT INFORMATION
  Report Type: Spontaneous
  Country: US (occurrence: None)
  Receive Date: 20130326
  Receipt Date: 20130326
  Transmission Date: 20140127
  Serious: Yes (Death)
  Sender: FDA-Public Use
  Company Number: SYM-2013-02008

PATIENT
  Age: 43 Year
  Sex: Female

DRUGS (1)
  1. XENAZINE(TETRABENAZINE) (TABLETS) (TETRABENAZINE) [Suspect]
     Indication: PRODUCT USED FOR UNKNOWN INDICATION
     Route: 048
     Dates: start: 20120324, end: 20130207

REACTIONS (1)
  - Death [None]
